FAERS Safety Report 6126913-0 (Version None)
Quarter: 2009Q1

REPORT INFORMATION
  Report Type: 
  Country: None (occurrence: None)
  Receive Date: 20090320
  Receipt Date: 20090107
  Transmission Date: 20090719
  Serious: No
  Sender: FDA-Public Use
  Company Number: US-ABBOTT-09P-163-0496188-00

PATIENT
  Sex: Female
  Weight: 64.922 kg

DRUGS (1)
  1. ERYTHROMYCIN BASE [Suspect]
     Indication: SINUSITIS
     Route: 048
     Dates: start: 19990101, end: 19990101

REACTIONS (2)
  - PRURITUS [None]
  - RASH [None]
